FAERS Safety Report 16311992 (Version 2)
Quarter: 2019Q2

REPORT INFORMATION
  Report Type: Spontaneous
  Country: US (occurrence: US)
  Receive Date: 20190515
  Receipt Date: 20190626
  Transmission Date: 20190711
  Serious: No
  Sender: FDA-Public Use
  Company Number: US-AMGEN-USASP2019073702

PATIENT
  Age: 72 Year
  Sex: Male
  Weight: 83 kg

DRUGS (25)
  1. COENZYME Q10 [Concomitant]
     Active Substance: UBIDECARENONE
     Dosage: 100 MILLIGRAM, QD
     Route: 048
  2. VITAMIN B12 [Concomitant]
     Active Substance: CYANOCOBALAMIN
     Dosage: 5000 MICROGRAM, QD
     Route: 060
  3. DIABETA [GLIBENCLAMIDE] [Concomitant]
     Dosage: 2.5 MILLIGRAM, AS NECESSARY
     Route: 048
  4. DHEA [Concomitant]
     Active Substance: PRASTERONE
     Dosage: 50 MILLIGRAM, QD
     Route: 048
  5. KRILL OIL [Concomitant]
     Active Substance: DIETARY SUPPLEMENT
     Dosage: 1500 MILLIGRAM
     Route: 048
  6. OMEGA 3 FISH OIL [FISH OIL] [Concomitant]
     Dosage: 1000 MILLIGRAM, QID
     Route: 048
  7. BRILINTA [Concomitant]
     Active Substance: TICAGRELOR
     Dosage: 90 MILLIGRAM, BID
     Route: 048
  8. VITAMIN D3 [Concomitant]
     Active Substance: CHOLECALCIFEROL
     Dosage: 1000 UNIT, QD
     Route: 048
  9. MILK THISTLE [SILYBUM MARIANUM SEED] [Concomitant]
     Dosage: 2000 MILLIGRAM
     Route: 048
  10. AMLODIPINE [Concomitant]
     Active Substance: AMLODIPINE BESYLATE
     Indication: HYPERTENSION
     Dosage: 7.5 MILLIGRAM
  11. BILBERRY [VACCINIUM MYRTILLUS FRUIT] [Concomitant]
     Dosage: 400 INTERNATIONAL UNIT, QD
     Route: 048
  12. FOLVITE [FOLIC ACID] [Concomitant]
     Dosage: 4 MILLIGRAM, QD
     Route: 048
  13. ZINC SULFATE [Concomitant]
     Active Substance: ZINC SULFATE\ZINC SULFATE ANHYDROUS
     Dosage: 220 MICROGRAM, AS NECESSARY
     Route: 048
  14. REPATHA [Suspect]
     Active Substance: EVOLOCUMAB
     Indication: LOW DENSITY LIPOPROTEIN INCREASED
     Dosage: 140 MILLIGRAM, Q2WK
     Route: 058
     Dates: start: 201903
  15. EDARBI [Concomitant]
     Active Substance: AZILSARTAN KAMEDOXOMIL
     Dosage: 80 MILLIGRAM, QD
     Route: 048
  16. TOPROL XL [Concomitant]
     Active Substance: METOPROLOL SUCCINATE
     Dosage: 25 MILLIGRAM, QD
     Route: 048
  17. NITROSTAT [Concomitant]
     Active Substance: NITROGLYCERIN
     Indication: CHEST PAIN
     Dosage: 0.4 MILLIGRAM, AS NECESSARY, EVERY FIVE MINUTES
     Route: 060
  18. SELENIUM [Concomitant]
     Active Substance: SELENIUM
     Dosage: 250 MICROGRAM, QMO
     Route: 048
  19. VITAMIN K2 [MENAQUINONE] [Concomitant]
     Dosage: 100 MICROGRAM
     Route: 048
  20. VITAMIN B6 [Concomitant]
     Active Substance: PYRIDOXINE HYDROCHLORIDE
     Dosage: 50 MILLIGRAM, QD
     Route: 048
  21. LIPITOR [Concomitant]
     Active Substance: ATORVASTATIN CALCIUM
     Dosage: 10 MILLIGRAM, QD
     Route: 048
  22. ASCORBIC ACID. [Concomitant]
     Active Substance: ASCORBIC ACID
     Dosage: 300 MILLIGRAM, QD
     Route: 048
  23. ASPIRIN [ACETYLSALICYLIC ACID] [Concomitant]
     Active Substance: ASPIRIN
     Dosage: 81 MILLIGRAM, QD
     Route: 048
  24. LUTEIN-ZEAXANTHIN [Concomitant]
     Route: 048
  25. TOPROL XL [Concomitant]
     Active Substance: METOPROLOL SUCCINATE
     Dosage: 50 MILLIGRAM, QD
     Route: 048

REACTIONS (3)
  - Device issue [Unknown]
  - Accidental exposure to product [Unknown]
  - Left ventricular dysfunction [Unknown]

NARRATIVE: CASE EVENT DATE: 201903
